FAERS Safety Report 9482918 (Version 1)
Quarter: 2013Q3

REPORT INFORMATION
  Report Type: Spontaneous
  Country: US (occurrence: US)
  Receive Date: 20130828
  Receipt Date: 20130828
  Transmission Date: 20140515
  Serious: Yes (Death)
  Sender: FDA-Public Use
  Company Number: US-AMGEN-KDL242141

PATIENT
  Age: 55 Year
  Sex: Female
  Weight: 44 kg

DRUGS (4)
  1. PROCRIT [Suspect]
     Indication: ANAEMIA OF MALIGNANT DISEASE
     Dosage: 40000 IU, QWK
     Route: 058
     Dates: start: 20070716, end: 200708
  2. PACLITAXEL PTOTEIN-BOUND PARTICLES FOR INJECTABLE SUSPENSION [Concomitant]
     Dosage: UNK UNK, UNK
     Route: 042
     Dates: start: 20070618
  3. DIPHENHYDRAMINE HYDROCHLORIDE [Concomitant]
     Dosage: 25 MG, UNK
     Route: 042
     Dates: start: 20070618
  4. DOLASETRON MESYLATE [Concomitant]
     Dosage: 100 MG, UNK
     Route: 048
     Dates: start: 20070618

REACTIONS (1)
  - Death [Fatal]
